FAERS Safety Report 6764549 (Version 3)
Quarter: 2018Q3

REPORT INFORMATION
  Report Type: Spontaneous
  Country: IT (occurrence: IT)
  Receive Date: 20080919
  Receipt Date: 20180827
  Transmission Date: 20181010
  Serious: Yes (Death)
  Sender: FDA-Public Use
  Company Number: IT-PFIZER INC-2008055500

PATIENT
  Age: 68 Year
  Sex: Male

DRUGS (4)
  1. VIAGRA [Suspect]
     Active Substance: SILDENAFIL CITRATE
     Indication: PROSTATECTOMY
     Dosage: 100 MG, 2 EVERY 1 WEEKS
     Route: 048
     Dates: start: 20050101
  2. VIAGRA [Interacting]
     Active Substance: SILDENAFIL CITRATE
     Indication: ERECTILE DYSFUNCTION
     Dosage: UNK
     Route: 048
  3. PLAUNAZIDE [Interacting]
     Active Substance: HYDROCHLOROTHIAZIDE\OLMESARTAN MEDOXOMIL
     Indication: HYPERTENSION
     Dosage: 20 MG, 2X/DAY
     Route: 048
     Dates: start: 20080417
  4. PLAUNAC [Interacting]
     Active Substance: OLMESARTAN MEDOXOMIL
     Indication: HYPERTENSION
     Dosage: 20 MG, 2X/DAY
     Route: 048
     Dates: start: 20080417

REACTIONS (4)
  - Drug interaction [Fatal]
  - Syncope [Fatal]
  - Hypotension [Fatal]
  - Cerebrovascular insufficiency [Fatal]
